FAERS Safety Report 8444529-8 (Version None)
Quarter: 2012Q2

REPORT INFORMATION
  Report Type: 
  Country: None (occurrence: None)
  Receive Date: 20120612
  Receipt Date: 20120612
  Transmission Date: 20120825
  Serious: No
  Sender: FDA-Public Use
  Company Number: None

PATIENT
  Sex: Female

DRUGS (2)
  1. LAMICTAL [Suspect]
     Indication: CONVULSION
     Dosage: LAMICTAL 5MG 4 TABS BID ORAL
     Route: 048
     Dates: start: 20120607
  2. LAMICTAL [Suspect]
     Indication: CEREBRAL PALSY
     Dosage: LAMICTAL 5MG 4 TABS BID ORAL
     Route: 048
     Dates: start: 20120607

REACTIONS (1)
  - VOMITING [None]
